FAERS Safety Report 7343787-0 (Version None)
Quarter: 2011Q1

REPORT INFORMATION
  Report Type: 
  Country: None (occurrence: None)
  Receive Date: 20110310
  Receipt Date: 20110224
  Transmission Date: 20110831
  Serious: Yes (Other)
  Sender: FDA-Public Use
  Company Number: IE-ROCHE-714765

PATIENT
  Sex: Male

DRUGS (3)
  1. METHADONE [Suspect]
     Route: 064
  2. PEGASYS [Suspect]
     Route: 064
     Dates: start: 20100601, end: 20100616
  3. COPEGUS [Suspect]
     Route: 064
     Dates: start: 20100601, end: 20100616

REACTIONS (1)
  - DRUG WITHDRAWAL SYNDROME [None]
